FAERS Safety Report 17712447 (Version 4)
Quarter: 2020Q4

REPORT INFORMATION
  Report Type: Spontaneous
  Country: US (occurrence: US)
  Receive Date: 20200427
  Receipt Date: 20201209
  Transmission Date: 20210113
  Serious: Yes (Other)
  Sender: FDA-Public Use
  Company Number: US-PFIZER INC-2020164567

PATIENT
  Age: 8 Year
  Sex: Female
  Weight: 4.08 kg

DRUGS (1)
  1. GENOTROPIN MQ [Suspect]
     Active Substance: SOMATROPIN
     Indication: GROWTH HORMONE DEFICIENCY
     Dosage: 1.8 MG, DAILY (EVERY NIGHT)
     Route: 058
     Dates: start: 20200403, end: 202006

REACTIONS (6)
  - Sleep apnoea syndrome [Unknown]
  - Tonsillar hypertrophy [Unknown]
  - Therapeutic response unexpected [Unknown]
  - Adenoidal disorder [Unknown]
  - Arthralgia [Not Recovered/Not Resolved]
  - Dysphagia [Unknown]

NARRATIVE: CASE EVENT DATE: 202004
